FAERS Safety Report 13808309 (Version 2)
Quarter: 2017Q4

REPORT INFORMATION
  Report Type: Other
  Country: ES (occurrence: ES)
  Receive Date: 20170728
  Receipt Date: 20171102
  Transmission Date: 20180320
  Serious: Yes (Life-Threatening, Other)
  Sender: FDA-Public Use
  Company Number: ES-ARIAD-2017ES008613

PATIENT

DRUGS (1)
  1. ICLUSIG [Suspect]
     Active Substance: PONATINIB
     Indication: CHRONIC MYELOID LEUKAEMIA
     Dosage: 15 MG, QD
     Route: 048
     Dates: start: 20151215, end: 20161019

REACTIONS (4)
  - Cardiac failure congestive [Unknown]
  - Deep vein thrombosis [Unknown]
  - Pulmonary hypertension [Unknown]
  - Hypertension [Unknown]

NARRATIVE: CASE EVENT DATE: 20161009
